FAERS Safety Report 8389816-7 (Version None)
Quarter: 2012Q2

REPORT INFORMATION
  Report Type: 
  Country: None (occurrence: None)
  Receive Date: 20120529
  Receipt Date: 20120525
  Transmission Date: 20120825
  Serious: Yes (Disabling, Other)
  Sender: FDA-Public Use
  Company Number: PHHY2011FR91657

PATIENT
  Sex: Female
  Weight: 65 kg

DRUGS (5)
  1. CALCIPOTRIENE [Concomitant]
     Dosage: UNK UKN, UNK
     Dates: start: 20010406
  2. ACETAMINOPHEN [Concomitant]
     Dosage: UNK UKN, UNK
     Dates: start: 20110707
  3. EXTAVIA [Suspect]
     Indication: MULTIPLE SCLEROSIS
     Dosage: 1 ML, QOD
     Route: 058
     Dates: start: 20110707
  4. DEDROGYL [Concomitant]
  5. NUX VOMICA [Concomitant]
     Dosage: UNK UKN, UNK
     Dates: start: 20060316

REACTIONS (7)
  - HEADACHE [None]
  - INSOMNIA [None]
  - FATIGUE [None]
  - SENSORY DISTURBANCE [None]
  - MYALGIA [None]
  - SLEEP DISORDER [None]
  - MULTIPLE SCLEROSIS RELAPSE [None]
